FAERS Safety Report 8965441 (Version 1)
Quarter: 2012Q4

REPORT INFORMATION
  Report Type: 
  Country: NG (occurrence: NG)
  Receive Date: 20121213
  Receipt Date: 20121213
  Transmission Date: 20130627
  Serious: Yes (Other)
  Sender: FDA-Public Use
  Company Number: NG-PFIZER INC-2012150306

PATIENT
  Sex: Male

DRUGS (1)
  1. LYRICA [Suspect]
     Dosage: 75 mg, bd (2x/day)
     Route: 064
     Dates: start: 201110, end: 20121028

REACTIONS (2)
  - Maternal exposure timing unspecified [Unknown]
  - Foetal distress syndrome [Unknown]
